FAERS Safety Report 14914903 (Version 3)
Quarter: 2018Q3

REPORT INFORMATION
  Report Type: Spontaneous
  Country: CH (occurrence: CH)
  Receive Date: 20180518
  Receipt Date: 20180713
  Transmission Date: 20181010
  Serious: Yes (Hospitalization)
  Sender: FDA-Public Use
  Company Number: CH-LPDUSPRD-20180833

PATIENT
  Sex: Male
  Weight: 67 kg

DRUGS (22)
  1. METAMUCIL [Concomitant]
     Active Substance: PLANTAGO SEED
     Dosage: (1 IN 1 D)
     Route: 065
  2. SPIRICORT [Concomitant]
     Active Substance: PREDNISOLONE
     Dosage: 1.5?0?0/ (7.5 MG, 1 IN 2 D)
     Route: 048
  3. VALVERDE [Concomitant]
     Active Substance: HERBALS
     Dosage: (20)
     Route: 065
  4. AXOTIDE DISKHALER [Concomitant]
     Dosage: (2 IN 1 D)
     Route: 065
  5. ATARAX [Concomitant]
     Active Substance: HYDROXYZINE HYDROCHLORIDE
     Dosage: 1/2 (25 MG)
     Route: 065
  6. FERINJECT [Suspect]
     Active Substance: FERRIC CARBOXYMALTOSE
     Dosage: 500 MG
     Route: 041
     Dates: start: 20161114
  7. MOTILIUM [Concomitant]
     Active Substance: DOMPERIDONE
     Dosage: 30 MG (10 MG,3 IN 1 D)
     Route: 065
  8. PANTOPRAZOLE [Concomitant]
     Active Substance: PANTOPRAZOLE
     Dosage: 80 MG (40 MG,2 IN 1 D)
     Route: 065
  9. RELAXAN [Concomitant]
     Dosage: (2 IN 1 D)
     Route: 065
  10. ANTISTAX FORTE [Concomitant]
     Dosage: 1 IN 1 D
     Route: 065
  11. SINGULAIR [Concomitant]
     Active Substance: MONTELUKAST SODIUM
     Dosage: 10 MG (10 MG,1 IN 1 D)
     Route: 065
  12. LISTRIL [Concomitant]
     Active Substance: LISINOPRIL
     Dosage: 20 MG (20 MG,1 IN 1 D)
     Route: 065
  13. OPTIFEN [Concomitant]
     Active Substance: IBUPROFEN
     Dosage: 600 MG (600 MG,1 IN 1 D)
     Route: 065
  14. TRITTICO [Concomitant]
     Active Substance: TRAZODONE HYDROCHLORIDE
     Dosage: 50 MG (50 MG,1 IN 1 D)
     Route: 065
  15. VI?DE 3 [Concomitant]
     Active Substance: CHOLECALCIFEROL
     Dosage: 8?0?0 (4500 )
     Route: 065
  16. FLATULEX [Concomitant]
     Active Substance: ACTIVATED CHARCOAL\DIMETHICONE
     Dosage: (1 IN 1 D)
     Route: 065
  17. FRESUBIN [Concomitant]
     Active Substance: AMINO ACIDS\DEXTROSE\ELECTROLYTES NOS\SOYBEAN OIL\VITAMINS
     Dosage: (2 IN 1 D)
     Route: 065
  18. LEVOCETIRIZIN MEPHA [Concomitant]
     Dosage: (5 MG,2 IN 1 D)
     Route: 065
  19. SEREVENT DISKUS [Concomitant]
     Active Substance: SALMETEROL XINAFOATE
     Dosage: 100 MCG (50 MCG,2 IN 1 D)
     Route: 065
  20. XARELTO [Concomitant]
     Active Substance: RIVAROXABAN
     Dosage: 15 MG (15 MG, 1 IN 1 D)
     Route: 048
     Dates: end: 20180421
  21. LAXOBERON [Concomitant]
     Active Substance: SODIUM PICOSULFATE
     Dosage: (5 IN 1 D)
     Route: 065
  22. TAMSULOSIN SANDOZ ECO [Concomitant]
     Dosage: 0.4 MG (0.4 MG,1 IN 1 D)
     Route: 065

REACTIONS (1)
  - Ischaemic cerebral infarction [Recovering/Resolving]

NARRATIVE: CASE EVENT DATE: 20180424
